FAERS Safety Report 19047520 (Version 1)
Quarter: 2021Q1

REPORT INFORMATION
  Report Type: Spontaneous
  Country: FR (occurrence: FR)
  Receive Date: 20210323
  Receipt Date: 20210323
  Transmission Date: 20210420
  Serious: Yes (Death)
  Sender: FDA-Public Use
  Company Number: FR-009507513-2103FRA004494

PATIENT
  Age: 76 Year
  Sex: Male
  Weight: 79 kg

DRUGS (3)
  1. KEYTRUDA [Suspect]
     Active Substance: PEMBROLIZUMAB
     Indication: RENAL CANCER
     Dosage: 200 MILLIGRAM, 1 CYCLICAL
     Route: 041
     Dates: start: 20210112, end: 20210202
  2. INLYTA [Suspect]
     Active Substance: AXITINIB
     Indication: RENAL CANCER
     Dosage: 6 MILLIGRAM, QD
     Route: 048
     Dates: start: 20210112
  3. MODERNA COVID?19 VACCINE [Suspect]
     Active Substance: CX-024414
     Indication: COVID-19 IMMUNISATION
     Dosage: UNK
     Route: 030
     Dates: start: 20210215

REACTIONS (1)
  - Sudden death [Fatal]

NARRATIVE: CASE EVENT DATE: 20210216
